FAERS Safety Report 7937851 (Version 2)
Quarter: 2023Q1

REPORT INFORMATION
  Report Type: Spontaneous
  Country: SE (occurrence: SE)
  Receive Date: 20110510
  Receipt Date: 20230330
  Transmission Date: 20230418
  Serious: Yes (Life-Threatening, Hospitalization, Other)
  Sender: FDA-Public Use
  Company Number: SE-BAYER-2011-036538

PATIENT
  Age: 42 Year
  Sex: Female

DRUGS (11)
  1. YASMIN [Suspect]
     Active Substance: DROSPIRENONE\ETHINYL ESTRADIOL
     Indication: Hormone level abnormal
     Dosage: UNK
     Route: 048
     Dates: start: 20100915, end: 20110223
  2. YASMIN [Suspect]
     Active Substance: DROSPIRENONE\ETHINYL ESTRADIOL
     Indication: Headache
  3. LYRICA [Suspect]
     Active Substance: PREGABALIN
     Indication: Neuralgia
     Dosage: 75 MG, UNK
     Dates: start: 2007
  4. LYRICA [Suspect]
     Active Substance: PREGABALIN
     Indication: Nerve injury
     Dosage: 600 MILLIGRAM, QD (225 MG MORNING, 375 MG EVENING REGIMEN DOSE UNIT: MILLIGRAM)
     Route: 048
     Dates: start: 2007
  5. LYRICA [Suspect]
     Active Substance: PREGABALIN
     Indication: Neuralgia
     Dosage: 75 MILLIGRAM, BID (75 MG, 2X/DAY REGIMEN DOSE UNIT: MILLIGRAM)
  6. WARFARIN SODIUM [Suspect]
     Active Substance: WARFARIN SODIUM
     Indication: Pulmonary embolism
  7. QUTENZA [Concomitant]
     Active Substance: CAPSAICIN
     Indication: Hyperaesthesia
     Dosage: UNK (2012)
     Route: 062
     Dates: start: 2012
  8. QUTENZA [Concomitant]
     Active Substance: CAPSAICIN
     Indication: Neuralgia
  9. SIMVASTATIN [Concomitant]
     Active Substance: SIMVASTATIN
     Dosage: 20 MILLIGRAM, QD (20 MG, 1X/DAY REGIMEN DOSE UNIT: MILLIGRAM) (21-FEB-2013)
     Dates: start: 20130221
  10. CAPSAICIN [Concomitant]
     Active Substance: CAPSAICIN
     Indication: Hyperaesthesia
     Dosage: UNK
     Route: 062
     Dates: start: 2012
  11. CAPSAICIN [Concomitant]
     Active Substance: CAPSAICIN
     Indication: Neuralgia

REACTIONS (15)
  - Pulmonary embolism [Recovered/Resolved]
  - Dyspnoea [None]
  - Pain [None]
  - Deep vein thrombosis [None]
  - Pain in extremity [None]
  - Off label use [None]
  - Eye haemorrhage [Recovered/Resolved with Sequelae]
  - Weight increased [Recovered/Resolved with Sequelae]
  - Personality disorder [Not Recovered/Not Resolved]
  - Blunted affect [Recovering/Resolving]
  - Withdrawal syndrome [Recovering/Resolving]
  - Feeling abnormal [Not Recovered/Not Resolved]
  - Memory impairment [Unknown]
  - Petit mal epilepsy [Not Recovered/Not Resolved]
  - Loss of consciousness [Not Recovered/Not Resolved]

NARRATIVE: CASE EVENT DATE: 20070101
